FAERS Safety Report 8421116-9 (Version None)
Quarter: 2012Q2

REPORT INFORMATION
  Report Type: 
  Country: None (occurrence: None)
  Receive Date: 20120604
  Receipt Date: 20120604
  Transmission Date: 20120825
  Serious: Yes (Hospitalization)
  Sender: FDA-Public Use
  Company Number: None

PATIENT
  Age: 80 Year
  Sex: Male
  Weight: 60 kg

DRUGS (1)
  1. METHOTREXATE [Suspect]
     Indication: LUNG NEOPLASM MALIGNANT
     Dosage: MG PO
     Route: 048
     Dates: start: 20110914, end: 20111206

REACTIONS (8)
  - PRESYNCOPE [None]
  - PNEUMONITIS [None]
  - WEIGHT DECREASED [None]
  - ORGANISING PNEUMONIA [None]
  - PULMONARY MASS [None]
  - NEOPLASM PROGRESSION [None]
  - POLYARTHRITIS [None]
  - RESPIRATORY DEPRESSION [None]
